FAERS Safety Report 5279944-7 (Version None)
Quarter: 2007Q1

REPORT INFORMATION
  Report Type: 
  Country: None (occurrence: None)
  Receive Date: 20070329
  Receipt Date: 20070326
  Transmission Date: 20070707
  Serious: Yes (Death, Hospitalization)
  Sender: FDA-Public Use
  Company Number: US-JNJFOC-20070305922

PATIENT
  Age: 64 Year
  Sex: Male

DRUGS (7)
  1. PREZISTA [Suspect]
     Indication: HIV INFECTION
     Dosage: TAKEN WITH RITONAVIR WITH FOOD
     Route: 048
  2. RITONAVIR [Concomitant]
     Indication: HIV INFECTION
     Route: 065
  3. TRUVADA [Concomitant]
     Indication: HIV INFECTION
     Route: 065
  4. DAPSONE [Concomitant]
     Route: 065
  5. OXYCODONE HCL [Concomitant]
     Route: 065
  6. LOPERAMIDE HCL [Concomitant]
     Route: 065
  7. BACLOFEN [Concomitant]
     Route: 065

REACTIONS (2)
  - HEPATIC FAILURE [None]
  - HEPATIC NEOPLASM MALIGNANT [None]
